FAERS Safety Report 4775087-7 (Version None)
Quarter: 2005Q3

REPORT INFORMATION
  Report Type: 
  Country: None (occurrence: None)
  Receive Date: 20050919
  Receipt Date: 20050909
  Transmission Date: 20060218
  Serious: Yes (Other)
  Sender: FDA-Public Use
  Company Number: PHBS2005CH13201

PATIENT
  Age: 32 Year
  Sex: Female

DRUGS (2)
  1. LAMISIL [Suspect]
     Dosage: 1 DF, BID, TOPICAL
     Route: 061
     Dates: start: 20050720, end: 20050801
  2. BETACORTON S (HALCINONID, SALICYLIC ACID, BUTYLHYDROXYANISOL, ISOPROPY [Concomitant]

REACTIONS (1)
  - DYSGEUSIA [None]
